FAERS Safety Report 17116244 (Version 1)
Quarter: 2019Q4

REPORT INFORMATION
  Report Type: Spontaneous
  Country: FR (occurrence: FR)
  Receive Date: 20191205
  Receipt Date: 20191205
  Transmission Date: 20200122
  Serious: Yes (Other)
  Sender: FDA-Public Use
  Company Number: FR-MYLANLABS-2019M1118659

PATIENT
  Sex: Female

DRUGS (1)
  1. TRASTUZUMAB. [Suspect]
     Active Substance: TRASTUZUMAB
     Indication: INVASIVE BREAST CARCINOMA
     Dosage: UNKNOWN
     Route: 065

REACTIONS (3)
  - Ejection fraction decreased [Unknown]
  - Cardiotoxicity [Unknown]
  - Hypertension [Not Recovered/Not Resolved]
